FAERS Safety Report 12663283 (Version 1)
Quarter: 2016Q3

REPORT INFORMATION
  Report Type: Spontaneous
  Country: US (occurrence: US)
  Receive Date: 20160818
  Receipt Date: 20160818
  Transmission Date: 20161109
  Serious: Yes (Hospitalization, Other)
  Sender: FDA-Public Use
  Company Number: US-TEVA-685352USA

PATIENT
  Age: 58 Year
  Sex: Female

DRUGS (1)
  1. MIMVEY LO [Suspect]
     Active Substance: ESTRADIOL\NORETHINDRONE ACETATE
     Dates: start: 2015, end: 2016

REACTIONS (2)
  - Malaise [Unknown]
  - Pulmonary embolism [Unknown]
